FAERS Safety Report 8760493 (Version 3)
Quarter: 2013Q1

REPORT INFORMATION
  Report Type: Spontaneous
  Country: BR (occurrence: BR)
  Receive Date: 20120830
  Receipt Date: 20130320
  Transmission Date: 20140127
  Serious: Yes (Life-Threatening, Other)
  Sender: FDA-Public Use
  Company Number: PHHY2012BR070252

PATIENT
  Age: 79 Year
  Sex: Female
  Weight: 72 kg

DRUGS (3)
  1. FORASEQ [Suspect]
     Indication: ASTHMA
     Dosage: 1 INHALATION AFTER BREAKFAST AND 1 INHLATION AFTER DINNER
     Dates: start: 201205
  2. FORASEQ [Suspect]
     Dosage: 2 DF, AFTER BREAKFAST AND DINNER
     Dates: start: 201206, end: 20120825
  3. BENICAR HCT [Concomitant]
     Indication: HYPERTENSION
     Dosage: 1 DF, QD
     Route: 048

REACTIONS (9)
  - Feeling abnormal [Recovered/Resolved]
  - Gait disturbance [Recovered/Resolved]
  - Hyperhidrosis [Recovered/Resolved]
  - Nasopharyngitis [Recovering/Resolving]
  - Tremor [Recovered/Resolved]
  - Insomnia [Recovered/Resolved]
  - Vomiting [Recovered/Resolved]
  - Nausea [Recovering/Resolving]
  - Device malfunction [Unknown]
